FAERS Safety Report 4725555-9 (Version None)
Quarter: 2005Q3

REPORT INFORMATION
  Report Type: 
  Country: None (occurrence: None)
  Receive Date: 20050722
  Receipt Date: 20050722
  Transmission Date: 20060218
  Serious: Yes (Hospitalization)
  Sender: FDA-Public Use
  Company Number: None

PATIENT
  Age: 44 Year
  Sex: Female

DRUGS (2)
  1. MYCOPHENOLATE [Suspect]
     Indication: PANCREAS TRANSPLANT
     Dosage: 1 G TWICE DAILY
  2. MYCOPHENOLATE [Suspect]
     Indication: RENAL TRANSPLANT
     Dosage: 1 G TWICE DAILY

REACTIONS (2)
  - NAUSEA [None]
  - NEUTROPHIL COUNT DECREASED [None]
